FAERS Safety Report 6692856-7 (Version None)
Quarter: 2010Q2

REPORT INFORMATION
  Report Type: 
  Country: None (occurrence: None)
  Receive Date: 20100419
  Receipt Date: 20100409
  Transmission Date: 20101027
  Serious: Yes (Other)
  Sender: FDA-Public Use
  Company Number: 2010SP012946

PATIENT
  Age: 57 Year
  Sex: Male
  Weight: 116.5744 kg

DRUGS (5)
  1. PROVENTIL-HFA [Suspect]
     Indication: BRONCHITIS
     Dosage: 90 MCG; INH
     Route: 055
     Dates: start: 20100223, end: 20100224
  2. GABAPENTIN [Concomitant]
  3. TOPRIMATE [Concomitant]
  4. SPIRIVA [Concomitant]
  5. MUCINEX DM [Concomitant]

REACTIONS (7)
  - COUGH [None]
  - FOREIGN BODY [None]
  - MEDICATION ERROR [None]
  - OROPHARYNGEAL PAIN [None]
  - PHARYNGEAL DISORDER [None]
  - PHARYNGEAL HAEMORRHAGE [None]
  - THROAT IRRITATION [None]
